FAERS Safety Report 24582667 (Version 1)
Quarter: 2024Q4

REPORT INFORMATION
  Report Type: Spontaneous
  Country: US (occurrence: US)
  Receive Date: 20241106
  Receipt Date: 20241106
  Transmission Date: 20250115
  Serious: No
  Sender: MERCK
  Company Number: US-009507513-2410USA013960

PATIENT
  Age: 57 Year
  Sex: Female

DRUGS (3)
  1. BELSOMRA [Suspect]
     Active Substance: SUVOREXANT
     Indication: Insomnia
     Dosage: ONCE A DAY
     Route: 048
     Dates: start: 20241009
  2. ESTRADIOL [Concomitant]
     Active Substance: ESTRADIOL
  3. PROGESTERONE [Concomitant]
     Active Substance: PROGESTERONE

REACTIONS (2)
  - Night sweats [Not Recovered/Not Resolved]
  - Drug ineffective [Unknown]

NARRATIVE: CASE EVENT DATE: 20241001
